FAERS Safety Report 15836347 (Version 1)
Quarter: 2018Q4

REPORT INFORMATION
  Report Type: Spontaneous
  Country: US (occurrence: US)
  Receive Date: 20181221
  Receipt Date: 20181221
  Transmission Date: 20190205
  Serious: No
  Sender: FDA-Public Use
  Company Number: None

PATIENT

DRUGS (2)
  1. PRIVIGEN [Suspect]
     Active Substance: HUMAN IMMUNOGLOBULIN G
  2. ALBURX [Suspect]
     Active Substance: ALBUMIN HUMAN
     Dosage: LIQUID
     Route: 042

REACTIONS (4)
  - Wrong technique in product usage process [None]
  - Product packaging confusion [None]
  - Wrong product administered [None]
  - Wrong product stored [None]
